FAERS Safety Report 22059318 (Version 1)
Quarter: 2023Q1

REPORT INFORMATION
  Report Type: Report from Study
  Country: US (occurrence: US)
  Receive Date: 20230303
  Receipt Date: 20230303
  Transmission Date: 20230418
  Serious: Yes (Other)
  Sender: FDA-Public Use
  Company Number: US-TEVA-2022-US-2833651

PATIENT
  Sex: Female

DRUGS (1)
  1. AUSTEDO [Suspect]
     Active Substance: DEUTETRABENAZINE
     Indication: Tardive dyskinesia
     Dosage: 12 MILLIGRAM DAILY; 6 MG, TWICE DAILY
     Route: 065
     Dates: start: 20221121, end: 20230214

REACTIONS (2)
  - Suicidal ideation [Recovered/Resolved]
  - Nightmare [Recovered/Resolved]
